FAERS Safety Report 5453918-5 (Version None)
Quarter: 2007Q3

REPORT INFORMATION
  Report Type: 
  Country: None (occurrence: None)
  Receive Date: 20070917
  Receipt Date: 20070913
  Transmission Date: 20080115
  Serious: Yes (Congenital Anomaly)
  Sender: FDA-Public Use
  Company Number: US-BRISTOL-MYERS SQUIBB COMPANY-13904107

PATIENT
  Sex: Male
  Weight: 3 kg

DRUGS (3)
  1. DIDANOSINE [Suspect]
     Indication: HIV INFECTION
     Route: 064
  2. STAVUDINE [Suspect]
     Indication: HIV INFECTION
     Route: 064
  3. NELFINAVIR [Suspect]
     Indication: HIV INFECTION
     Route: 064

REACTIONS (2)
  - HYPOSPADIAS [None]
  - PREGNANCY [None]
